FAERS Safety Report 6316569-6 (Version None)
Quarter: 2009Q3

REPORT INFORMATION
  Report Type: 
  Country: None (occurrence: None)
  Receive Date: 20090820
  Receipt Date: 20090812
  Transmission Date: 20100115
  Serious: Yes (Other)
  Sender: FDA-Public Use
  Company Number: PHHY2009AU31108

PATIENT

DRUGS (4)
  1. GLEEVEC [Suspect]
     Indication: CHRONIC MYELOID LEUKAEMIA
     Dosage: 400 MG
     Route: 048
     Dates: start: 20081207
  2. LIPITOR [Concomitant]
     Indication: HYPERCHOLESTEROLAEMIA
     Dosage: 10 MG, QD
     Route: 048
  3. ISCOVER [Concomitant]
     Dosage: 75 MG, QD
     Route: 048
  4. VASCORDOL [Concomitant]
     Route: 048

REACTIONS (5)
  - CONJUNCTIVAL DISORDER [None]
  - INTRAOCULAR PRESSURE INCREASED [None]
  - MUSCLE SPASMS [None]
  - NAUSEA [None]
  - PERIORBITAL OEDEMA [None]
